FAERS Safety Report 6436564-6 (Version None)
Quarter: 2009Q4

REPORT INFORMATION
  Report Type: 
  Country: None (occurrence: None)
  Receive Date: 20091111
  Receipt Date: 20091029
  Transmission Date: 20100525
  Serious: Yes (Other)
  Sender: FDA-Public Use
  Company Number: CA-GENENTECH-293832

PATIENT
  Sex: Female

DRUGS (4)
  1. LUCENTIS [Suspect]
     Indication: DRUG USE FOR UNKNOWN INDICATION
     Dosage: UNK
     Route: 031
  2. VITALUX [Concomitant]
     Indication: DRUG USE FOR UNKNOWN INDICATION
  3. VITAMINS NOS [Concomitant]
     Indication: DRUG USE FOR UNKNOWN INDICATION
  4. VIGAMOX [Concomitant]
     Indication: DRUG USE FOR UNKNOWN INDICATION

REACTIONS (1)
  - VISUAL IMPAIRMENT [None]
